FAERS Safety Report 5949624-0 (Version None)
Quarter: 2008Q4

REPORT INFORMATION
  Report Type: 
  Country: None (occurrence: None)
  Receive Date: 20081112
  Receipt Date: 20081028
  Transmission Date: 20090506
  Serious: Yes (Hospitalization)
  Sender: FDA-Public Use
  Company Number: US-JNJFOC-20081102142

PATIENT
  Sex: Male
  Weight: 61.69 kg

DRUGS (10)
  1. DURAGESIC-100 [Suspect]
     Indication: PAIN
     Route: 062
  2. NEURONTIN [Concomitant]
     Indication: CONVULSION
     Route: 048
  3. NEURONTIN [Concomitant]
     Indication: NEURALGIA
     Route: 048
  4. VALIUM [Concomitant]
     Indication: CONVULSION
     Route: 048
  5. FENTORA [Concomitant]
     Indication: PAIN
     Route: 048
  6. CLONIDINE [Concomitant]
     Indication: DETOXIFICATION
     Route: 048
  7. SEROQUEL [Concomitant]
     Indication: SLEEP DISORDER
     Route: 048
  8. PROTONIX [Concomitant]
     Indication: GASTROOESOPHAGEAL REFLUX DISEASE
     Route: 048
  9. PRILOSEC [Concomitant]
     Indication: GASTROOESOPHAGEAL REFLUX DISEASE
     Route: 048
  10. IMITREX [Concomitant]
     Indication: MIGRAINE
     Route: 048

REACTIONS (20)
  - ANOREXIA [None]
  - CARDIO-RESPIRATORY ARREST [None]
  - CONFUSIONAL STATE [None]
  - CONVERSION DISORDER [None]
  - DISTURBANCE IN ATTENTION [None]
  - DRUG EFFECT DECREASED [None]
  - DYSARTHRIA [None]
  - GAIT DISTURBANCE [None]
  - GALLBLADDER DISORDER [None]
  - HYPOTENSION [None]
  - ILEUS [None]
  - LIVER INJURY [None]
  - MEMORY IMPAIRMENT [None]
  - NAUSEA [None]
  - SMALL INTESTINAL OBSTRUCTION [None]
  - TREMOR [None]
  - VISION BLURRED [None]
  - VOMITING [None]
  - WEIGHT DECREASED [None]
  - WITHDRAWAL SYNDROME [None]
